FAERS Safety Report 7944567-5 (Version None)
Quarter: 2011Q4

REPORT INFORMATION
  Report Type: 
  Country: None (occurrence: None)
  Receive Date: 20111129
  Receipt Date: 20111116
  Transmission Date: 20120403
  Serious: Yes (Other)
  Sender: FDA-Public Use
  Company Number: JP-JNJFOC-20110710173

PATIENT
  Age: 53 Year
  Sex: Male

DRUGS (6)
  1. LOXOPROFEN [Concomitant]
     Indication: PAIN
     Route: 048
     Dates: start: 20061110, end: 20100101
  2. FENTANYL-100 [Suspect]
     Indication: PAIN
     Route: 062
     Dates: end: 20100729
  3. FENTANYL-100 [Suspect]
     Route: 062
     Dates: start: 20090508
  4. MORPHINE HCL ELIXIR [Suspect]
     Indication: PAIN
     Route: 048
     Dates: start: 20100730, end: 20110120
  5. TOPIRAMATE [Concomitant]
     Indication: PAIN
     Route: 048
     Dates: start: 20080530, end: 20090913
  6. NORTRIPTYLINE HCL [Concomitant]
     Indication: PAIN
     Route: 048
     Dates: start: 20050707, end: 20091210

REACTIONS (1)
  - ADRENAL INSUFFICIENCY [None]
